FAERS Safety Report 19360274 (Version 1)
Quarter: 2021Q2

REPORT INFORMATION
  Report Type: Other
  Country: CA (occurrence: CA)
  Receive Date: 20210601
  Receipt Date: 20210601
  Transmission Date: 20210717
  Serious: Yes (Other)
  Sender: FDA-Public Use
  Company Number: CA-APOTEX-2021AP012732

PATIENT
  Age: 53 Year
  Sex: Male

DRUGS (6)
  1. COSENTYX [Suspect]
     Active Substance: SECUKINUMAB
     Dosage: 300 MILLIGRAM, Q.M.T.
     Route: 058
  2. GLYBURIDE. [Concomitant]
     Active Substance: GLYBURIDE
     Indication: PRODUCT USED FOR UNKNOWN INDICATION
     Dosage: 1 DOSAGE FORM, BID
     Route: 048
  3. METFORMIN [Suspect]
     Active Substance: METFORMIN HYDROCHLORIDE
     Indication: PRODUCT USED FOR UNKNOWN INDICATION
     Dosage: 500 MILLIGRAM, BID
     Route: 048
  4. COSENTYX [Suspect]
     Active Substance: SECUKINUMAB
     Dosage: UNK
     Route: 058
  5. COSENTYX [Suspect]
     Active Substance: SECUKINUMAB
     Indication: PSORIASIS
     Dosage: 300 MILLIGRAM, Q.M.T.
     Route: 058
  6. SULFASALAZINE. [Concomitant]
     Active Substance: SULFASALAZINE
     Indication: PRODUCT USED FOR UNKNOWN INDICATION
     Dosage: 2 DOSAGE FORM, QD
     Route: 048

REACTIONS (17)
  - Gastric disorder [Unknown]
  - Faeces soft [Unknown]
  - Sexual dysfunction [Unknown]
  - Dyspepsia [Unknown]
  - Diarrhoea [Unknown]
  - Cellulitis [Unknown]
  - Pruritus [Unknown]
  - Therapeutic product effect incomplete [Unknown]
  - Lichen sclerosus [Unknown]
  - Skin infection [Unknown]
  - Pain of skin [Unknown]
  - Quality of life decreased [Unknown]
  - Erythema [Unknown]
  - Discomfort [Unknown]
  - Inappropriate schedule of product administration [Unknown]
  - Self-consciousness [Unknown]
  - Psoriasis [Unknown]
